FAERS Safety Report 24277059 (Version 7)
Quarter: 2024Q4

REPORT INFORMATION
  Report Type: Spontaneous
  Country: US (occurrence: US)
  Receive Date: 20240903
  Receipt Date: 20241212
  Transmission Date: 20250115
  Serious: Yes (Hospitalization)
  Sender: LUPIN
  Company Number: US-LUPIN PHARMACEUTICALS INC.-2024-08596

PATIENT

DRUGS (2)
  1. AMLODIPINE BESYLATE [Suspect]
     Active Substance: AMLODIPINE BESYLATE
     Indication: Product used for unknown indication
     Dosage: UNK FOR THE LAST TWO YEARS
     Route: 065
  2. AMLODIPINE BESYLATE [Suspect]
     Active Substance: AMLODIPINE BESYLATE
     Dosage: UNK NEW VERSION
     Route: 065
     Dates: start: 20240825

REACTIONS (17)
  - Dyspepsia [Unknown]
  - Nasal inflammation [Unknown]
  - Muscle spasms [Unknown]
  - Feeling abnormal [Unknown]
  - Drug intolerance [Unknown]
  - Sinonasal obstruction [Unknown]
  - Decreased appetite [Unknown]
  - Head discomfort [Unknown]
  - Hyperchlorhydria [Unknown]
  - Vision blurred [Unknown]
  - Tremor [Unknown]
  - Illness [Unknown]
  - Feeling jittery [Unknown]
  - Product quality issue [Unknown]
  - Muscle twitching [Unknown]
  - Limb discomfort [Unknown]
  - Headache [Unknown]

NARRATIVE: CASE EVENT DATE: 20240801
